FAERS Safety Report 24056546 (Version 3)
Quarter: 2025Q4

REPORT INFORMATION
  Report Type: Spontaneous
  Country: US (occurrence: US)
  Receive Date: 20240705
  Receipt Date: 20251205
  Transmission Date: 20260117
  Serious: No
  Sender: EISAI
  Company Number: US-Eisai-EC-2024-167320

PATIENT
  Age: 63 Year
  Sex: Male
  Weight: 114 kg

DRUGS (2)
  1. LEQEMBI [Suspect]
     Active Substance: LECANEMAB-IRMB
     Indication: Dementia Alzheimer^s type
     Route: 048
     Dates: start: 20240507, end: 20250925
  2. LEQEMBI [Suspect]
     Active Substance: LECANEMAB-IRMB
     Dosage: IQLIK

REACTIONS (6)
  - Pyrexia [Recovered/Resolved]
  - Chills [Recovered/Resolved]
  - Pain [Recovered/Resolved]
  - Headache [Recovered/Resolved]
  - Decreased appetite [Recovered/Resolved]
  - Inappropriate schedule of product administration [Recovered/Resolved]

NARRATIVE: CASE EVENT DATE: 20240507
